FAERS Safety Report 5736276-8 (Version None)
Quarter: 2008Q2

REPORT INFORMATION
  Report Type: 
  Country: None (occurrence: None)
  Receive Date: 20080513
  Receipt Date: 20080507
  Transmission Date: 20081010
  Serious: Yes (Life-Threatening, Hospitalization)
  Sender: FDA-Public Use
  Company Number: US-JNJFOC-20080501380

PATIENT
  Sex: Female

DRUGS (4)
  1. ASPIRIN [Suspect]
     Indication: PYREXIA
     Route: 048
  2. ASPIRIN [Suspect]
     Indication: VARICELLA
     Route: 048
  3. BAYER [Suspect]
     Indication: PYREXIA
     Route: 048
  4. BAYER [Suspect]
     Indication: VARICELLA
     Route: 048

REACTIONS (2)
  - CROHN'S DISEASE [None]
  - REYE'S SYNDROME [None]
